FAERS Safety Report 10183179 (Version 1)
Quarter: 2014Q2

REPORT INFORMATION
  Report Type: Spontaneous
  Country: US (occurrence: US)
  Receive Date: 20140520
  Receipt Date: 20140520
  Transmission Date: 20141212
  Serious: Yes (Hospitalization)
  Sender: FDA-Public Use
  Company Number: US-BAYER-2014-074301

PATIENT
  Age: 41 Year
  Sex: Female

DRUGS (6)
  1. YAZ [Suspect]
  2. TOPROL XL [Concomitant]
  3. MAXZIDE [Concomitant]
  4. BENICAR [Concomitant]
  5. VALTREX [Concomitant]
  6. NEXIUM [Concomitant]

REACTIONS (1)
  - Pulmonary embolism [None]
